FAERS Safety Report 10357470 (Version 5)
Quarter: 2018Q4

REPORT INFORMATION
  Report Type: Report from Study
  Country: US (occurrence: US)
  Receive Date: 20140801
  Receipt Date: 20181024
  Transmission Date: 20190204
  Serious: Yes (Other)
  Sender: FDA-Public Use
  Company Number: US-SA-2014SA099843

PATIENT
  Age: 69 Year
  Sex: Female
  Weight: 63.05 kg

DRUGS (8)
  1. LISINOPRIL. [Concomitant]
     Active Substance: LISINOPRIL
     Dosage: 1 DF,QD
  2. HYDROCHLOROTHIAZIDE. [Concomitant]
     Active Substance: HYDROCHLOROTHIAZIDE
     Dosage: 1 DF,QD
  3. SIMVASTATIN. [Concomitant]
     Active Substance: SIMVASTATIN
     Dosage: 1 DF,QD
  4. TRAVATAN [Concomitant]
     Active Substance: TRAVOPROST
     Dosage: 1 DF,UNK
     Route: 047
  5. ANASTROZOLE. [Concomitant]
     Active Substance: ANASTROZOLE
     Dosage: 1 DF,QD
  6. INSULIN GLARGINE [Suspect]
     Active Substance: INSULIN GLARGINE
     Indication: TYPE 2 DIABETES MELLITUS
     Dosage: 60 DF,BID
     Route: 065
     Dates: start: 201410
  7. INSULIN GLARGINE [Suspect]
     Active Substance: INSULIN GLARGINE
     Dosage: 60 DF,BID
     Route: 065
     Dates: start: 201410
  8. METFORMIN [Concomitant]
     Active Substance: METFORMIN HYDROCHLORIDE
     Dosage: 4 DF,QD

REACTIONS (4)
  - Nasopharyngitis [Recovered/Resolved]
  - Product administration error [Unknown]
  - Breast cancer [Unknown]
  - Malaise [Recovered/Resolved]
